FAERS Safety Report 23859673 (Version 1)
Quarter: 2024Q2

REPORT INFORMATION
  Report Type: Spontaneous
  Country: US (occurrence: US)
  Receive Date: 20240515
  Receipt Date: 20240515
  Transmission Date: 20240716
  Serious: No
  Sender: FDA-Public Use
  Company Number: US-MYLANLABS-2024M1040303

PATIENT
  Sex: Male

DRUGS (1)
  1. LISDEXAMFETAMINE DIMESYLATE [Suspect]
     Active Substance: LISDEXAMFETAMINE DIMESYLATE
     Indication: Product used for unknown indication
     Dosage: UNK
     Route: 065

REACTIONS (8)
  - Condition aggravated [Unknown]
  - Therapeutic response changed [Unknown]
  - Obsessive-compulsive disorder [Unknown]
  - Somnolence [Unknown]
  - Mood altered [Unknown]
  - Insomnia [Unknown]
  - Feeling abnormal [Unknown]
  - Product substitution issue [Unknown]
